FAERS Safety Report 6253937-5 (Version None)
Quarter: 2009Q3

REPORT INFORMATION
  Report Type: 
  Country: None (occurrence: None)
  Receive Date: 20090702
  Receipt Date: 20090619
  Transmission Date: 20100115
  Serious: Yes (Hospitalization, Disabling)
  Sender: FDA-Public Use
  Company Number: PHHO2009BR08010

PATIENT
  Sex: Male

DRUGS (15)
  1. CYCLOSPORINE [Suspect]
     Indication: RENAL TRANSPLANT
     Dosage: 100MG TWICE DAILY
     Route: 048
     Dates: start: 20031020, end: 20040929
  2. MYCOPHENOLATE MOFETIL [Suspect]
     Indication: RENAL TRANSPLANT
     Dosage: 1000MG TWICE DAILY
     Route: 048
     Dates: start: 20031020, end: 20040922
  3. MYCOPHENOLATE MOFETIL [Suspect]
     Dosage: 1000MG DAILY
     Route: 048
     Dates: start: 20040923, end: 20041118
  4. DACLIZUMAB [Suspect]
     Indication: RENAL TRANSPLANT
     Dosage: 100MG SINGLE DOSE
     Route: 042
     Dates: start: 20031021, end: 20031021
  5. DACLIZUMAB [Suspect]
     Dosage: 50MG EVERY 2 WEEKS
     Route: 042
     Dates: start: 20031104, end: 20031216
  6. SIROLIMUS [Suspect]
     Indication: RENAL TRANSPLANT
     Dosage: 2MG DAILY
     Route: 048
     Dates: start: 20041022, end: 20041118
  7. PREDNISONE [Suspect]
     Indication: RENAL TRANSPLANT
     Dosage: 30MG ONCE DAILY
     Route: 048
     Dates: start: 20031020, end: 20041117
  8. PREDNISONE [Suspect]
     Dosage: 5MG ONCE DAILY
     Route: 048
     Dates: start: 20041118, end: 20041119
  9. SULFAMETHOXAZOLE AND TRIMETHOPRIM [Concomitant]
     Dosage: UNK
     Dates: start: 20031021
  10. RANITIDINE [Concomitant]
     Dosage: UNK
     Dates: start: 20031020
  11. ALLOPURINOL [Concomitant]
     Dosage: UNK
     Dates: start: 20040601
  12. AMOXICILLIN [Concomitant]
     Dosage: UNK
     Dates: start: 20031118, end: 20031125
  13. ATENOLOL [Concomitant]
     Dosage: UNK
     Dates: start: 20031023, end: 20040406
  14. CEFAZOLIN [Concomitant]
     Dosage: UNK
     Dates: start: 20031021, end: 20031024
  15. NIFEDIPINE [Concomitant]
     Dosage: UNK
     Dates: start: 20031022, end: 20040308

REACTIONS (7)
  - DEHYDRATION [None]
  - DIARRHOEA [None]
  - GRAFT LOSS [None]
  - LEUKOCYTOSIS [None]
  - NAUSEA [None]
  - RENAL FAILURE [None]
  - VOMITING [None]
